FAERS Safety Report 25738405 (Version 1)
Quarter: 2025Q3

REPORT INFORMATION
  Report Type: Spontaneous
  Country: PE (occurrence: PE)
  Receive Date: 20250829
  Receipt Date: 20250829
  Transmission Date: 20251021
  Serious: Yes (Hospitalization, Other)
  Sender: STRIDES
  Company Number: PE-STRIDES ARCOLAB LIMITED-2025SP010933

PATIENT
  Age: 68 Year
  Sex: Male

DRUGS (3)
  1. TRIAMCINOLONE ACETONIDE [Suspect]
     Active Substance: TRIAMCINOLONE ACETONIDE
     Indication: Vitiligo
     Route: 065
  2. TACROLIMUS [Suspect]
     Active Substance: TACROLIMUS
     Indication: Vitiligo
     Route: 065
  3. CLOBETASOL [Suspect]
     Active Substance: CLOBETASOL
     Indication: Vitiligo
     Route: 065

REACTIONS (6)
  - Metastatic malignant melanoma [Unknown]
  - Disseminated paracoccidioidomycosis [Unknown]
  - Human T-cell lymphotropic virus infection [Unknown]
  - Klebsiella infection [Unknown]
  - Staphylococcal infection [Unknown]
  - Off label use [Unknown]
